FAERS Safety Report 19659874 (Version 1)
Quarter: 2021Q3

REPORT INFORMATION
  Report Type: Spontaneous
  Country: CL (occurrence: CL)
  Receive Date: 20210805
  Receipt Date: 20210805
  Transmission Date: 20211014
  Serious: Yes (Other)
  Sender: FDA-Public Use
  Company Number: NVSC2021CL175053

PATIENT

DRUGS (4)
  1. FLUOROURACIL. [Suspect]
     Active Substance: FLUOROURACIL
     Indication: ADENOCARCINOMA GASTRIC
     Dosage: 2600 MG/M2, CYCLIC2,600 MG/M2 IN A 24?HOUR INFUSION ON DAY 1 (EACH CYCLE EVERY 2 WEEKS)
     Route: 042
  2. OXALIPLATIN. [Suspect]
     Active Substance: OXALIPLATIN
     Indication: ADENOCARCINOMA GASTRIC
     Dosage: 85 MG/M2, CYCLIC (ON DAY 1), EACH CYCLE, PERFORMED EVERY 2 WEEKS
     Route: 042
  3. LEUCOVORIN CALCIUM. [Suspect]
     Active Substance: LEUCOVORIN CALCIUM
     Indication: ADENOCARCINOMA GASTRIC
     Dosage: 200 MG/M2, CYCLIC(ON DAY 1), (EACH CYCLE, PERFORMED EVERY 2 WEEKS)
     Route: 042
  4. DOCETAXEL. [Suspect]
     Active Substance: DOCETAXEL
     Indication: ADENOCARCINOMA GASTRIC
     Dosage: 50 MG/M2, CYCLIC(ON DAY 1), EACH CYCLE, PERFORMED EVERY 2 WEEKS
     Route: 042

REACTIONS (2)
  - Gastric perforation [Unknown]
  - Product use in unapproved indication [Unknown]
